FAERS Safety Report 8153647-3 (Version None)
Quarter: 2012Q1

REPORT INFORMATION
  Report Type: 
  Country: None (occurrence: None)
  Receive Date: 20120216
  Receipt Date: 20120216
  Transmission Date: 20120608
  Serious: Yes (Life-Threatening, Disabling, Other)
  Sender: FDA-Public Use
  Company Number: None

PATIENT
  Age: 61 Year
  Sex: Female
  Weight: 69.8539 kg

DRUGS (2)
  1. RECLAST [Suspect]
     Indication: OSTEOPOROSIS
     Dosage: 5 MG/100 ML INFUSION/YEARLY
     Dates: start: 20111222
  2. FOSAMAX [Concomitant]

REACTIONS (15)
  - ARTHRALGIA [None]
  - INFLUENZA LIKE ILLNESS [None]
  - SKIN DISCOLOURATION [None]
  - TENDON PAIN [None]
  - TREMOR [None]
  - JOINT STIFFNESS [None]
  - GAIT DISTURBANCE [None]
  - JOINT EFFUSION [None]
  - OEDEMA PERIPHERAL [None]
  - TOOTHACHE [None]
  - PALLOR [None]
  - JOINT LOCK [None]
  - CEREBROVASCULAR ACCIDENT [None]
  - PAIN IN JAW [None]
  - MUSCULOSKELETAL DISORDER [None]
